FAERS Safety Report 8078323-7 (Version None)
Quarter: 2012Q1

REPORT INFORMATION
  Report Type: 
  Country: None (occurrence: None)
  Receive Date: 20120123
  Receipt Date: 20120109
  Transmission Date: 20120608
  Serious: Yes (Hospitalization)
  Sender: FDA-Public Use
  Company Number: 1000027178

PATIENT
  Age: 71 Year
  Sex: Male

DRUGS (4)
  1. AMLODIPINE [Concomitant]
  2. ADIRO (ACETYLSALICYLIC ACID) (100 MILLIGRAM) (ACETYLSALICYLIC ACID) [Concomitant]
  3. VENTOLIN (SALBUTAMOL) (100 MICROGRAM) (SALBUTAMOL) [Concomitant]
  4. ROFLUMILAST (ROFLUMILAST) (500 MICROGRAM, TABLETS) [Suspect]
     Indication: CHRONIC OBSTRUCTIVE PULMONARY DISEASE
     Dosage: 500 MCG (500 MCG, 1 IN 1 D), ORAL
     Route: 048
     Dates: start: 20110101, end: 20110315

REACTIONS (6)
  - ABDOMINAL DISTENSION [None]
  - NAUSEA [None]
  - WEIGHT DECREASED [None]
  - DECREASED APPETITE [None]
  - ABDOMINAL DISCOMFORT [None]
  - ASTHENIA [None]
